FAERS Safety Report 7596836-9 (Version None)
Quarter: 2011Q3

REPORT INFORMATION
  Report Type: 
  Country: None (occurrence: None)
  Receive Date: 20110708
  Receipt Date: 20110627
  Transmission Date: 20111222
  Serious: Yes (Death, Other)
  Sender: FDA-Public Use
  Company Number: IL-CELGENEUS-082-50794-11021895

PATIENT
  Age: 60 Year
  Sex: Male

DRUGS (4)
  1. DESFERAL [Concomitant]
     Route: 065
  2. VIDAZA [Suspect]
     Dosage: 150 MILLIGRAM
     Route: 065
     Dates: start: 20101025, end: 20101031
  3. VIDAZA [Suspect]
     Dosage: 150 MILLIGRAM
     Route: 065
  4. VIDAZA [Suspect]
     Dosage: 150 MILLIGRAM
     Route: 065

REACTIONS (3)
  - SUPRAVENTRICULAR TACHYCARDIA [None]
  - DEATH [None]
  - PULMONARY HYPERTENSION [None]
